FAERS Safety Report 21689790 (Version 1)
Quarter: 2022Q4

REPORT INFORMATION
  Report Type: Spontaneous
  Country: US (occurrence: US)
  Receive Date: 20221206
  Receipt Date: 20221206
  Transmission Date: 20230113
  Serious: No
  Sender: FDA-Public Use
  Company Number: US-MYLANLABS-2022M1123671

PATIENT
  Sex: Male

DRUGS (2)
  1. GABAPENTIN [Suspect]
     Active Substance: GABAPENTIN
     Indication: Neuralgia
     Dosage: UNK
     Route: 065
  2. GABAPENTIN [Suspect]
     Active Substance: GABAPENTIN
     Indication: Sleep disorder

REACTIONS (5)
  - Feeling abnormal [Unknown]
  - Memory impairment [Unknown]
  - Somnolence [Unknown]
  - Drug ineffective [Unknown]
  - Product use in unapproved indication [Unknown]
